FAERS Safety Report 7308555-4 (Version None)
Quarter: 2011Q1

REPORT INFORMATION
  Report Type: 
  Country: None (occurrence: None)
  Receive Date: 20110210
  Receipt Date: 20110127
  Transmission Date: 20110831
  Serious: Yes (Death, Hospitalization)
  Sender: FDA-Public Use
  Company Number: 2011000364

PATIENT
  Age: 60 Year
  Sex: Male

DRUGS (2)
  1. ERLOTINI (ERLOTINIB) (TABLET) (ERLOTINIB) [Suspect]
     Indication: HEAD AND NECK CANCER
     Dosage: (100 MG,QD),ORAL
     Route: 048
     Dates: start: 20100927, end: 20101215
  2. PANOBINOSTAT (TABLET) [Suspect]
     Indication: HEAD AND NECK CANCER
     Dosage: (30 MG,QD),ORAL
     Route: 048
     Dates: start: 20101005, end: 20101213

REACTIONS (5)
  - SQUAMOUS CELL CARCINOMA [None]
  - NEOPLASM MALIGNANT [None]
  - PLEURAL EFFUSION [None]
  - LOCAL SWELLING [None]
  - MASS [None]
